FAERS Safety Report 8243903-2 (Version None)
Quarter: 2012Q1

REPORT INFORMATION
  Report Type: 
  Country: None (occurrence: None)
  Receive Date: 20120329
  Receipt Date: 20110607
  Transmission Date: 20120608
  Serious: No
  Sender: FDA-Public Use
  Company Number: US-MYLANLABS-2011S1009137

PATIENT
  Age: 65 Year
  Sex: Female
  Weight: 58.97 kg

DRUGS (11)
  1. ESTRADIOL [Suspect]
     Indication: HORMONE REPLACEMENT THERAPY
     Dosage: X1 DAY
     Route: 062
     Dates: start: 20110414, end: 20110415
  2. ESTRADIOL [Suspect]
     Route: 062
     Dates: start: 20110415, end: 20110415
  3. ESTRADIOL [Suspect]
     Indication: DEPRESSION
     Dosage: X1 DAY
     Route: 062
     Dates: start: 20110414, end: 20110415
  4. ESTRADIOL [Suspect]
     Indication: WEIGHT INCREASED
     Dosage: X1 DAY
     Route: 062
     Dates: start: 20110414, end: 20110415
  5. ESTRADIOL [Suspect]
     Indication: ASTHENIA
     Dosage: X1 DAY
     Route: 062
     Dates: start: 20110414, end: 20110415
  6. ASPIRIN [Concomitant]
     Route: 048
  7. GLUCOSAMIN CHONDR [Concomitant]
     Route: 048
  8. ESTRADIOL [Suspect]
     Route: 062
     Dates: start: 20110415, end: 20110415
  9. ESTRADIOL [Suspect]
     Route: 062
     Dates: start: 20110415, end: 20110415
  10. CELEBREX [Concomitant]
     Route: 048
  11. ESTRADIOL [Suspect]
     Route: 062
     Dates: start: 20110415, end: 20110415

REACTIONS (8)
  - NON-CARDIAC CHEST PAIN [None]
  - LUNG DISORDER [None]
  - HEART RATE INCREASED [None]
  - INCORRECT DRUG ADMINISTRATION DURATION [None]
  - OVERDOSE [None]
  - DYSPNOEA [None]
  - HEADACHE [None]
  - MYALGIA [None]
